FAERS Safety Report 20867571 (Version 12)
Quarter: 2022Q4

REPORT INFORMATION
  Report Type: Spontaneous
  Country: US (occurrence: US)
  Receive Date: 20220524
  Receipt Date: 20221207
  Transmission Date: 20230112
  Serious: No
  Sender: FDA-Public Use
  Company Number: US-PFIZER INC-202200744967

PATIENT
  Age: 61 Year
  Sex: Female

DRUGS (2)
  1. IBRANCE [Suspect]
     Active Substance: PALBOCICLIB
     Dosage: 125 MG
     Dates: end: 20220527
  2. IBRANCE [Suspect]
     Active Substance: PALBOCICLIB
     Dosage: 100 MG

REACTIONS (12)
  - Abdominal pain upper [Unknown]
  - Fatigue [Not Recovered/Not Resolved]
  - Peripheral swelling [Unknown]
  - White blood cell count decreased [Unknown]
  - Epistaxis [Unknown]
  - Stomatitis [Unknown]
  - Cystitis [Unknown]
  - Nausea [Unknown]
  - Urinary tract infection [Unknown]
  - Muscle spasms [Unknown]
  - Rash [Unknown]
  - Caffeine dependence [Unknown]
